FAERS Safety Report 5924200-4 (Version None)
Quarter: 2008Q3

REPORT INFORMATION
  Report Type: 
  Country: None (occurrence: None)
  Receive Date: 20080909
  Receipt Date: 20080319
  Transmission Date: 20090109
  Serious: Yes (Hospitalization, Other)
  Sender: FDA-Public Use
  Company Number: 163-20785-08020498

PATIENT
  Age: 83 Year
  Sex: Female

DRUGS (5)
  1. THALOMID [Suspect]
     Indication: MULTIPLE MYELOMA
     Dosage: 200 MG, QHS, ORAL
     Route: 048
     Dates: start: 20080204, end: 20080210
  2. DIOVOL (DIOVOL) [Concomitant]
  3. MULTIVITES (MULTIVITAMINS) [Concomitant]
  4. HYDROCHLOROTHIAZIDE [Concomitant]
  5. FESO4 (FERROUS SULFATE) [Concomitant]

REACTIONS (1)
  - RASH MACULO-PAPULAR [None]
